FAERS Safety Report 18244937 (Version 1)
Quarter: 2020Q3

REPORT INFORMATION
  Report Type: Report from Study
  Country: CA (occurrence: CA)
  Receive Date: 20200908
  Receipt Date: 20200908
  Transmission Date: 20201103
  Serious: Yes (Hospitalization, Other)
  Sender: FDA-Public Use
  Company Number: CA-JNJFOC-20200501795

PATIENT
  Age: 85 Year
  Sex: Male

DRUGS (1)
  1. SIMPONI [Suspect]
     Active Substance: GOLIMUMAB
     Indication: PSORIATIC ARTHROPATHY
     Route: 058
     Dates: end: 20191205

REACTIONS (6)
  - Psoriatic arthropathy [Unknown]
  - Herpes zoster [Unknown]
  - Pneumonia [Recovered/Resolved]
  - Product use issue [Unknown]
  - Chronic obstructive pulmonary disease [Recovered/Resolved]
  - Off label use [Unknown]

NARRATIVE: CASE EVENT DATE: 2020
